FAERS Safety Report 8140272-3 (Version None)
Quarter: 2012Q1

REPORT INFORMATION
  Report Type: 
  Country: None (occurrence: None)
  Receive Date: 20120216
  Receipt Date: 20120209
  Transmission Date: 20120608
  Serious: Yes (Hospitalization)
  Sender: FDA-Public Use
  Company Number: PHEH2011US012227

PATIENT
  Sex: Male

DRUGS (2)
  1. EXJADE [Suspect]
     Indication: SICKLE CELL ANAEMIA
     Dosage: 2000 MG, DAILY
     Route: 048
     Dates: start: 20090910
  2. EXJADE [Suspect]
     Dosage: 1000 MG, DAILY
     Route: 048

REACTIONS (3)
  - GINGIVAL INFECTION [None]
  - EYE INFECTION [None]
  - SEPSIS [None]
